APPROVED DRUG PRODUCT: ZOLEDRONIC ACID
Active Ingredient: ZOLEDRONIC ACID
Strength: EQ 4MG BASE/100ML
Dosage Form/Route: INJECTABLE;INTRAVENOUS
Application: N203231 | Product #001 | TE Code: AP
Applicant: INFORLIFE SA
Approved: Aug 2, 2013 | RLD: Yes | RS: Yes | Type: RX